FAERS Safety Report 19364273 (Version 1)
Quarter: 2021Q2

REPORT INFORMATION
  Report Type: Report from Study
  Country: CN (occurrence: CN)
  Receive Date: 20210602
  Receipt Date: 20210602
  Transmission Date: 20210717
  Serious: Yes (Other)
  Sender: FDA-Public Use
  Company Number: CN-JNJFOC-20210550402

PATIENT

DRUGS (3)
  1. DAPAGLIFLOZIN. [Suspect]
     Active Substance: DAPAGLIFLOZIN
     Indication: PRODUCT USED FOR UNKNOWN INDICATION
     Route: 065
  2. CANAGLIFLOZIN [Suspect]
     Active Substance: CANAGLIFLOZIN
     Indication: PRODUCT USED FOR UNKNOWN INDICATION
     Route: 048
  3. EMPAGLIFLOZIN [Suspect]
     Active Substance: EMPAGLIFLOZIN
     Indication: PRODUCT USED FOR UNKNOWN INDICATION
     Route: 065

REACTIONS (14)
  - Renal failure [Unknown]
  - Body mass index decreased [Unknown]
  - Blood glucose increased [Unknown]
  - Dehydration [Unknown]
  - Dizziness [Unknown]
  - Diarrhoea [Unknown]
  - Urinary tract infection [Unknown]
  - Nausea [Unknown]
  - Toe amputation [Unknown]
  - Osteomyelitis [Unknown]
  - Vomiting [Unknown]
  - Ketoacidosis [Unknown]
  - Acute kidney injury [Unknown]
  - Fungal infection [Unknown]
